FAERS Safety Report 4747045-X (Version None)
Quarter: 2005Q3

REPORT INFORMATION
  Report Type: 
  Country: None (occurrence: None)
  Receive Date: 20050815
  Receipt Date: 20050730
  Transmission Date: 20060218
  Serious: Yes (Death)
  Sender: FDA-Public Use
  Company Number: 2005-01625

PATIENT
  Age: 70 Year
  Sex: Male

DRUGS (2)
  1. INTEGRILIN [Suspect]
     Indication: CORONARY ANGIOPLASTY
     Dates: start: 20050711, end: 20050714
  2. ACETYLSALICYLIC ACID SRT [Concomitant]

REACTIONS (5)
  - ELECTROMECHANICAL DISSOCIATION [None]
  - ENDOTRACHEAL INTUBATION COMPLICATION [None]
  - HAEMORRHAGE [None]
  - RESPIRATORY ARREST [None]
  - THROMBOCYTOPENIA [None]
